FAERS Safety Report 4940497-1 (Version None)
Quarter: 2006Q1

REPORT INFORMATION
  Report Type: 
  Country: None (occurrence: None)
  Receive Date: 20060131
  Receipt Date: 20051014
  Transmission Date: 20060701
  Serious: No
  Sender: FDA-Public Use
  Company Number: 200517794US

PATIENT
  Age: 84 Year
  Sex: Female

DRUGS (2)
  1. KETEK [Suspect]
     Indication: NASOPHARYNGITIS
     Dosage: 400 MG X 2 MG QD PO
     Route: 048
     Dates: start: 20051007, end: 20051012
  2. KETEK [Suspect]
     Indication: PHARYNGOLARYNGEAL PAIN
     Dosage: 400 MG X 2 MG QD PO
     Route: 048
     Dates: start: 20051007, end: 20051012

REACTIONS (1)
  - HALO VISION [None]
